FAERS Safety Report 23133884 (Version 1)
Quarter: 2023Q4

REPORT INFORMATION
  Report Type: Spontaneous
  Country: US (occurrence: None)
  Receive Date: 20231031
  Receipt Date: 20231031
  Transmission Date: 20240110
  Serious: No
  Sender: FDA-Public Use
  Company Number: None

PATIENT
  Sex: 0

DRUGS (1)
  1. COLGATE RENEWAL SENSITIVITY REPAIR [Suspect]
     Active Substance: STANNOUS FLUORIDE
     Dates: start: 20231009, end: 20231018

REACTIONS (7)
  - Hypersensitivity [None]
  - Oropharyngeal pain [None]
  - Oral disorder [None]
  - Erythema [None]
  - Headache [None]
  - Pyrexia [None]
  - Ear pruritus [None]

NARRATIVE: CASE EVENT DATE: 20231009
